FAERS Safety Report 9234863 (Version 1)
Quarter: 2013Q2

REPORT INFORMATION
  Report Type: Spontaneous
  Country: ZA (occurrence: ZA)
  Receive Date: 20130416
  Receipt Date: 20130416
  Transmission Date: 20140414
  Serious: Yes (Death, Hospitalization, Other)
  Sender: FDA-Public Use
  Company Number: ZA-PFIZER INC-2013114305

PATIENT
  Age: 30 Year
  Sex: Male
  Weight: 130 kg

DRUGS (3)
  1. ZITHROMAX [Suspect]
  2. VOLTAREN [Concomitant]
  3. CELESTONE [Concomitant]
     Dosage: 2CC IMI
     Route: 030

REACTIONS (2)
  - H1N1 influenza [Fatal]
  - Pneumonia [Fatal]
